FAERS Safety Report 11402166 (Version 1)
Quarter: 2015Q3

REPORT INFORMATION
  Report Type: Spontaneous
  Country: US (occurrence: US)
  Receive Date: 20150821
  Receipt Date: 20150821
  Transmission Date: 20151125
  Serious: No
  Sender: FDA-Public Use
  Company Number: US-ROCHE-1304029

PATIENT
  Sex: Male

DRUGS (2)
  1. COPEGUS [Suspect]
     Active Substance: RIBAVIRIN
     Indication: CHRONIC HEPATITIS C
     Dosage: 600/600MG  IN DIVIDED DOSES.
     Route: 048
     Dates: start: 20130901
  2. PEGASYS [Suspect]
     Active Substance: PEGINTERFERON ALFA-2A
     Indication: CHRONIC HEPATITIS C
     Route: 058
     Dates: start: 20130901

REACTIONS (6)
  - Urticaria [Recovered/Resolved]
  - Mood swings [Unknown]
  - Stress [Unknown]
  - Rash pruritic [Unknown]
  - Frustration [Unknown]
  - Irritability [Unknown]
